FAERS Safety Report 19610324 (Version 2)
Quarter: 2021Q3

REPORT INFORMATION
  Report Type: Report from Study
  Country: DE (occurrence: DE)
  Receive Date: 20210726
  Receipt Date: 20210803
  Transmission Date: 20211014
  Serious: Yes (Disabling, Other)
  Sender: FDA-Public Use
  Company Number: DE-MYLANLABS-2021M1044577

PATIENT
  Sex: Female
  Weight: 58 kg

DRUGS (6)
  1. METHOTREXATE. [Suspect]
     Active Substance: METHOTREXATE
     Indication: PRODUCT USED FOR UNKNOWN INDICATION
     Dosage: UNK
     Route: 065
  2. EUTHYROX [Concomitant]
     Active Substance: LEVOTHYROXINE SODIUM
     Indication: THYROID DISORDER
     Dosage: UNK
  3. METEX                              /00082702/ [Concomitant]
     Active Substance: METFORMIN HYDROCHLORIDE
     Indication: POLYARTHRITIS
     Dosage: 10 MILLIGRAM, QW
     Route: 058
     Dates: start: 201111
  4. HUMIRA [Suspect]
     Active Substance: ADALIMUMAB
     Indication: RHEUMATOID ARTHRITIS
     Dosage: 40 MILLIGRAM
     Route: 058
     Dates: start: 2020, end: 2020
  5. HUMIRA [Suspect]
     Active Substance: ADALIMUMAB
     Indication: POLYARTHRITIS
     Dosage: 40 MILLIGRAM
     Route: 058
     Dates: start: 20161018, end: 201910
  6. RAMIPRIL. [Concomitant]
     Active Substance: RAMIPRIL
     Indication: HYPERTENSION
     Dosage: UNK

REACTIONS (7)
  - Foot fracture [Recovered/Resolved]
  - Impaired healing [Recovered/Resolved]
  - Stress fracture [Recovered/Resolved]
  - Weight increased [Not Recovered/Not Resolved]
  - Mobility decreased [Unknown]
  - Drug ineffective [Not Recovered/Not Resolved]
  - Rash macular [Not Recovered/Not Resolved]

NARRATIVE: CASE EVENT DATE: 201811
